FAERS Safety Report 8101286-2 (Version None)
Quarter: 2012Q1

REPORT INFORMATION
  Report Type: 
  Country: None (occurrence: None)
  Receive Date: 20120129
  Receipt Date: 20111014
  Transmission Date: 20120608
  Serious: No
  Sender: FDA-Public Use
  Company Number: US-ABBOTT-11P-163-0864236-00

PATIENT
  Sex: Female
  Weight: 56.75 kg

DRUGS (2)
  1. MANY UNKNOWN MEDICATIONS [Concomitant]
     Indication: PRODUCT USED FOR UNKNOWN INDICATION
  2. HUMIRA [Suspect]
     Indication: RHEUMATOID ARTHRITIS
     Dates: start: 20110901

REACTIONS (5)
  - DYSPHONIA [None]
  - ARTHRALGIA [None]
  - INJECTION SITE PAIN [None]
  - HEADACHE [None]
  - PYREXIA [None]
